FAERS Safety Report 8228212-X (Version None)
Quarter: 2012Q1

REPORT INFORMATION
  Report Type: 
  Country: None (occurrence: None)
  Receive Date: 20120322
  Receipt Date: 20120130
  Transmission Date: 20120608
  Serious: Yes (Death)
  Sender: FDA-Public Use
  Company Number: US-BRISTOL-MYERS SQUIBB COMPANY-16272593

PATIENT
  Age: 52 Year
  Sex: Male

DRUGS (1)
  1. ERBITUX [Suspect]
     Indication: COLON CANCER METASTATIC
     Dosage: DOSE:550
     Route: 042
     Dates: start: 20110818, end: 20111019

REACTIONS (1)
  - NEOPLASM MALIGNANT [None]
